FAERS Safety Report 6340689 (Version 3)
Quarter: 2022Q4

REPORT INFORMATION
  Report Type: Spontaneous
  Country: FR (occurrence: FR)
  Receive Date: 20070622
  Receipt Date: 20221104
  Transmission Date: 20230112
  Serious: Yes (Death, Life-Threatening, Hospitalization)
  Sender: FDA-Public Use
  Company Number: FR-PFIZER INC-2007048495

PATIENT
  Age: 74 Year
  Sex: Male

DRUGS (5)
  1. SOLU-MEDROL [Suspect]
     Active Substance: METHYLPREDNISOLONE SODIUM SUCCINATE
     Dosage: UNK
     Route: 042
     Dates: start: 20070323, end: 20070329
  2. CIPROFLOXACIN HYDROCHLORIDE [Suspect]
     Active Substance: CIPROFLOXACIN HYDROCHLORIDE
     Indication: Respiratory tract infection
     Route: 048
     Dates: start: 20070323, end: 20070329
  3. FLUINDIONE [Suspect]
     Active Substance: FLUINDIONE
     Route: 048
     Dates: end: 20070329
  4. FUROSEMIDE [Suspect]
     Active Substance: FUROSEMIDE
     Indication: Hypertension
     Route: 048
     Dates: end: 20070329
  5. CEFTRIAXONE SODIUM [Suspect]
     Active Substance: CEFTRIAXONE SODIUM
     Indication: Respiratory tract infection
     Route: 042
     Dates: start: 20070323, end: 20070329

REACTIONS (3)
  - International normalised ratio increased [Fatal]
  - Cerebral haemorrhage [Fatal]
  - Respiratory failure [Fatal]

NARRATIVE: CASE EVENT DATE: 20070329
